FAERS Safety Report 15028640 (Version 2)
Quarter: 2018Q2

REPORT INFORMATION
  Report Type: Spontaneous
  Country: CO (occurrence: CO)
  Receive Date: 20180619
  Receipt Date: 20180629
  Transmission Date: 20180711
  Serious: Yes (Hospitalization, Other)
  Sender: FDA-Public Use
  Company Number: CO-CELGENEUS-COL-20180604495

PATIENT
  Age: 68 Year
  Sex: Male

DRUGS (1)
  1. REVLIMID [Suspect]
     Active Substance: LENALIDOMIDE
     Indication: PLASMA CELL MYELOMA
     Dosage: 25 MILLIGRAM
     Route: 048
     Dates: start: 20170404, end: 20180622

REACTIONS (2)
  - Joint swelling [Not Recovered/Not Resolved]
  - Cellulitis [Recovering/Resolving]

NARRATIVE: CASE EVENT DATE: 20180604
